FAERS Safety Report 8316519-7 (Version None)
Quarter: 2012Q2

REPORT INFORMATION
  Report Type: 
  Country: None (occurrence: None)
  Receive Date: 20120425
  Receipt Date: 20120425
  Transmission Date: 20120825
  Serious: Yes (Other)
  Sender: FDA-Public Use
  Company Number: None

PATIENT
  Sex: Female
  Weight: 87.5442 kg

DRUGS (1)
  1. METFORMIN HCL [Suspect]
     Indication: TYPE 2 DIABETES MELLITUS
     Dosage: 500MG 2 X DAILY ORAL
     Route: 048
     Dates: start: 20110901, end: 20111101

REACTIONS (5)
  - HEMIPARESIS [None]
  - VOMITING [None]
  - ABDOMINAL DISCOMFORT [None]
  - DIZZINESS [None]
  - SWOLLEN TONGUE [None]
